FAERS Safety Report 22614049 (Version 1)
Quarter: 2023Q2

REPORT INFORMATION
  Report Type: Spontaneous
  Country: US (occurrence: US)
  Receive Date: 20230619
  Receipt Date: 20230619
  Transmission Date: 20230721
  Serious: No
  Sender: FDA-Public Use
  Company Number: US-ELI_LILLY_AND_COMPANY-US202301002267

PATIENT
  Age: 45 Year
  Sex: Male

DRUGS (4)
  1. ADCIRCA [Suspect]
     Active Substance: TADALAFIL
     Indication: Pulmonary arterial hypertension
     Dosage: 40 MG, DAILY
     Route: 048
     Dates: start: 202212
  2. TYVASO [Suspect]
     Active Substance: TREPROSTINIL
     Indication: Pulmonary arterial hypertension
     Dosage: UNK UNK, OTHER (7 BREATHS FOUR TIMES A DAY)
     Route: 055
     Dates: start: 202212
  3. TYVASO [Suspect]
     Active Substance: TREPROSTINIL
     Dosage: UNK UNK, OTHER (10 BREATHS FOUR TIMES A DAY)
     Route: 055
     Dates: start: 202212
  4. TYVASO [Suspect]
     Active Substance: TREPROSTINIL
     Dosage: UNK UNK, OTHER (13 BREATHS FOUR TIMES DAILY)
     Route: 055

REACTIONS (6)
  - Coccydynia [Unknown]
  - Neuralgia [Unknown]
  - Diarrhoea [Unknown]
  - Dizziness [Unknown]
  - Headache [Unknown]
  - Fatigue [Unknown]

NARRATIVE: CASE EVENT DATE: 20221201
